FAERS Safety Report 13705888 (Version 2)
Quarter: 2017Q4

REPORT INFORMATION
  Report Type: Report from Study
  Country: US (occurrence: US)
  Receive Date: 20170630
  Receipt Date: 20171006
  Transmission Date: 20180320
  Serious: Yes (Hospitalization)
  Sender: FDA-Public Use
  Company Number: US-TAIHO ONCOLOGY INC-EU-2017-00925

PATIENT
  Sex: Female

DRUGS (1)
  1. LONSURF [Suspect]
     Active Substance: TIPIRACIL HYDROCHLORIDE\TRIFLURIDINE
     Dosage: DOSE AND FREQUENCY UNKNOWN
     Route: 048
     Dates: end: 20170619

REACTIONS (2)
  - Cancer pain [Unknown]
  - Disease progression [Unknown]

NARRATIVE: CASE EVENT DATE: 2017
